FAERS Safety Report 25339868 (Version 2)
Quarter: 2025Q3

REPORT INFORMATION
  Report Type: Report from Study
  Country: US (occurrence: US)
  Receive Date: 20250521
  Receipt Date: 20250821
  Transmission Date: 20251020
  Serious: No
  Sender: SUNOVION
  Company Number: US-SUMITOMO PHARMA SWITZERLAND GMBH-2025SPA005108

PATIENT
  Age: 65 Year
  Sex: Male

DRUGS (4)
  1. ORGOVYX [Suspect]
     Active Substance: RELUGOLIX
     Indication: Prostate cancer
     Route: 048
  2. ORGOVYX [Suspect]
     Active Substance: RELUGOLIX
     Dosage: 120 MG, QD
     Route: 048
     Dates: start: 20250203
  3. XTANDI [Concomitant]
     Active Substance: ENZALUTAMIDE
  4. PENICILLIN [Concomitant]
     Active Substance: PENICILLIN

REACTIONS (3)
  - Limb injury [Unknown]
  - Muscular weakness [Unknown]
  - Gait disturbance [Unknown]
